FAERS Safety Report 7362036-0 (Version None)
Quarter: 2011Q1

REPORT INFORMATION
  Report Type: 
  Country: None (occurrence: None)
  Receive Date: 20110318
  Receipt Date: 20110221
  Transmission Date: 20110831
  Serious: No
  Sender: FDA-Public Use
  Company Number: US-B.I. PHARMACEUTICALS,INC./RIDGEFIELD-2011-BP-00180BP

PATIENT
  Sex: Female

DRUGS (10)
  1. POTASSIUM [Concomitant]
  2. METOPROLOL SUCCINATE [Concomitant]
     Dosage: 25 MG
  3. CALCIUM AND VITAMIN D [Concomitant]
     Dosage: 81 MG
  4. DIGOXIN [Concomitant]
     Dosage: 0.125 MG
  5. PRADAXA [Suspect]
     Indication: ATRIAL FIBRILLATION
     Dosage: 300 MG
     Route: 048
     Dates: start: 20101205, end: 20110122
  6. ASPIRIN [Concomitant]
     Dosage: 81 MG
  7. GABAPENTIN [Concomitant]
     Dosage: 100 MG
  8. NIACIN [Concomitant]
     Dosage: 500 MG
  9. LEVOTHYROXINE SODIUM [Concomitant]
     Dosage: 0.05 MG
  10. LASIX [Concomitant]
     Dosage: 20 MG

REACTIONS (3)
  - CONTUSION [None]
  - WHEEZING [None]
  - PRURITUS [None]
